FAERS Safety Report 8512898-6 (Version None)
Quarter: 2012Q3

REPORT INFORMATION
  Report Type: 
  Country: None (occurrence: None)
  Receive Date: 20120716
  Receipt Date: 20120710
  Transmission Date: 20120928
  Serious: Yes (Death, Hospitalization)
  Sender: FDA-Public Use
  Company Number: US-BRISTOL-MYERS SQUIBB COMPANY-16595225

PATIENT
  Age: 63 Year
  Sex: Male
  Weight: 87 kg

DRUGS (5)
  1. CALCIUM CARBONATE [Concomitant]
  2. YERVOY [Suspect]
     Indication: METASTATIC OCULAR MELANOMA
     Dosage: SECOND DOSE:2FEB12
     Dates: start: 20120101, end: 20120202
  3. CANASA [Concomitant]
  4. LOVENOX [Concomitant]
     Indication: DEEP VEIN THROMBOSIS
     Route: 058
  5. PRILOSEC [Concomitant]

REACTIONS (5)
  - SEPTIC SHOCK [None]
  - COLITIS [None]
  - CLOSTRIDIUM DIFFICILE COLITIS [None]
  - MEGACOLON [None]
  - NEOPLASM MALIGNANT [None]
